FAERS Safety Report 10254323 (Version 1)
Quarter: 2014Q2

REPORT INFORMATION
  Report Type: Spontaneous
  Country: TR (occurrence: TR)
  Receive Date: 20140624
  Receipt Date: 20140624
  Transmission Date: 20141212
  Serious: Yes (Hospitalization)
  Sender: FDA-Public Use
  Company Number: TR-NOVOPROD-413708

PATIENT
  Sex: Female
  Weight: 2.4 kg

DRUGS (3)
  1. NOVORAPID FLEXPEN [Suspect]
     Indication: GESTATIONAL DIABETES
     Dosage: 12 U, QD
     Route: 064
     Dates: start: 20140129, end: 20140327
  2. CORASPIN [Concomitant]
     Indication: ANTIPLATELET THERAPY
     Dosage: 1X1
     Route: 064
     Dates: start: 201308, end: 20140327
  3. GYNOFERON [Concomitant]
     Indication: MINERAL SUPPLEMENTATION
     Dosage: 1X1
     Route: 064
     Dates: start: 201310, end: 20140327

REACTIONS (3)
  - Jaundice neonatal [Recovered/Resolved]
  - Premature baby [Unknown]
  - Foetal exposure during pregnancy [Recovered/Resolved]
